FAERS Safety Report 16255322 (Version 1)
Quarter: 2019Q2

REPORT INFORMATION
  Report Type: Spontaneous
  Country: US (occurrence: US)
  Receive Date: 20190430
  Receipt Date: 20190430
  Transmission Date: 20190711
  Serious: Yes (Hospitalization, Other)
  Sender: FDA-Public Use
  Company Number: US-AUROBINDO-AUR-APL-2019-022887

PATIENT

DRUGS (1)
  1. PSEUDOEPHEDRINE HYDROCHLORIDE. [Suspect]
     Active Substance: PSEUDOEPHEDRINE HYDROCHLORIDE
     Indication: NASAL CONGESTION
     Dosage: 10 MILLIGRAM, 4 TIMES A DAY
     Route: 048

REACTIONS (8)
  - Colitis ischaemic [Unknown]
  - Necrosis [Unknown]
  - Rectal haemorrhage [Unknown]
  - Vomiting [Unknown]
  - Ulcer [Unknown]
  - Inflammation [Unknown]
  - Diarrhoea haemorrhagic [Recovered/Resolved]
  - Abdominal pain lower [Recovering/Resolving]
